FAERS Safety Report 7850838-3 (Version None)
Quarter: 2011Q4

REPORT INFORMATION
  Report Type: 
  Country: None (occurrence: None)
  Receive Date: 20111021
  Receipt Date: 20111017
  Transmission Date: 20120403
  Serious: Yes (Hospitalization)
  Sender: FDA-Public Use
  Company Number: 2011-FR-0031

PATIENT
  Age: 85 Year
  Sex: Female

DRUGS (7)
  1. LYRICA [Concomitant]
  2. MORPHINE SULFATE [Suspect]
     Indication: PAIN
     Dosage: 1 DOSAGE FORM X 1 PER DAY ORAL
     Route: 048
     Dates: start: 20110601, end: 20110603
  3. VERSATIS (LIGNOCAINE) [Concomitant]
  4. ACETAMINOPHEN [Concomitant]
  5. ABSTRAL [Suspect]
     Indication: BACK PAIN
     Dosage: NOT EXCEEDING 1200 MCG/DAY SUBLINGUAL
     Route: 060
     Dates: start: 20110505, end: 20110603
  6. DURAGESIC-100 [Suspect]
     Indication: PAIN
     Dosage: 1 PATCH EVERY 3 DAYS TRANSDERMAL
     Route: 062
     Dates: start: 20110530, end: 20110603
  7. HYDROMORPHONE HCL [Concomitant]

REACTIONS (6)
  - NEUROLOGICAL SYMPTOM [None]
  - OFF LABEL USE [None]
  - MULTIPLE DRUG OVERDOSE [None]
  - SOMNOLENCE [None]
  - TOXICITY TO VARIOUS AGENTS [None]
  - BREAKTHROUGH PAIN [None]
